FAERS Safety Report 5704083-8 (Version None)
Quarter: 2008Q2

REPORT INFORMATION
  Report Type: 
  Country: None (occurrence: None)
  Receive Date: 20080414
  Receipt Date: 20080409
  Transmission Date: 20081010
  Serious: Yes (Death, Other)
  Sender: FDA-Public Use
  Company Number: DE-BRISTOL-MYERS SQUIBB COMPANY-14147532

PATIENT
  Age: 4 Year
  Sex: Female

DRUGS (6)
  1. CYCLOPHOSPHAMIDE [Suspect]
     Indication: BONE MARROW CONDITIONING REGIMEN
  2. THYMOGLOBULIN [Suspect]
     Indication: BONE MARROW CONDITIONING REGIMEN
  3. BUSULFAN [Suspect]
     Indication: BONE MARROW CONDITIONING REGIMEN
  4. MELPHALAN [Suspect]
     Indication: BONE MARROW CONDITIONING REGIMEN
  5. CYCLOSPORINE [Suspect]
     Indication: IMMUNOSUPPRESSION
  6. METHOTREXATE [Suspect]
     Indication: IMMUNOSUPPRESSION

REACTIONS (3)
  - ASPERGILLOSIS [None]
  - GRAFT VERSUS HOST DISEASE [None]
  - NEUTROPENIA [None]
